FAERS Safety Report 5992006-6 (Version None)
Quarter: 2008Q4

REPORT INFORMATION
  Report Type: 
  Country: None (occurrence: None)
  Receive Date: 20081202
  Receipt Date: 20080606
  Transmission Date: 20090506
  Serious: Yes (Other)
  Sender: FDA-Public Use
  Company Number: WAES 0806USA01316

PATIENT
  Age: 75 Year
  Sex: Female

DRUGS (7)
  1. FOSAMAX [Suspect]
     Indication: OSTEOPOROSIS
     Dosage: 70 MG/WKY/PO
     Route: 048
  2. ACCOLATE [Concomitant]
  3. ATROVENT [Concomitant]
  4. DIOVAN [Concomitant]
  5. GLUCOPHAGE [Concomitant]
  6. CLONIDINE [Concomitant]
  7. HYDROCHLOROTHIAZIDE [Concomitant]

REACTIONS (1)
  - OSTEONECROSIS [None]
